FAERS Safety Report 5504797-9 (Version None)
Quarter: 2007Q4

REPORT INFORMATION
  Report Type: 
  Country: None (occurrence: None)
  Receive Date: 20071031
  Receipt Date: 20071031
  Transmission Date: 20080405
  Serious: Yes (Life-Threatening, Hospitalization)
  Sender: FDA-Public Use
  Company Number: None

PATIENT
  Age: 55 Year
  Sex: Male

DRUGS (2)
  1. ACETAMINOPHEN AND HYDROCODONE BITARTRATE [Suspect]
     Dates: start: 20071011, end: 20071011
  2. CLONAZEPAM [Suspect]
     Indication: ANXIETY
     Dates: start: 20071011, end: 20071011

REACTIONS (8)
  - ACCIDENTAL OVERDOSE [None]
  - CONFUSIONAL STATE [None]
  - HYPERHIDROSIS [None]
  - INCOHERENT [None]
  - INTENTIONAL DRUG MISUSE [None]
  - LOSS OF CONSCIOUSNESS [None]
  - MENTAL STATUS CHANGES [None]
  - SEDATION [None]
